FAERS Safety Report 13497484 (Version 1)
Quarter: 2017Q2

REPORT INFORMATION
  Report Type: Spontaneous
  Country: US (occurrence: US)
  Receive Date: 20170428
  Receipt Date: 20170428
  Transmission Date: 20170830
  Serious: No
  Sender: FDA-Public Use
  Company Number: None

PATIENT
  Age: 25 Year
  Sex: Female

DRUGS (1)
  1. SIMPONI [Suspect]
     Active Substance: GOLIMUMAB
     Indication: RHEUMATOID ARTHRITIS
     Route: 058
     Dates: start: 20161023

REACTIONS (6)
  - Device failure [None]
  - Device malfunction [None]
  - Needle issue [None]
  - Device issue [None]
  - Drug dose omission [None]
  - Product closure issue [None]

NARRATIVE: CASE EVENT DATE: 20170414
